FAERS Safety Report 6580417-X (Version None)
Quarter: 2010Q1

REPORT INFORMATION
  Report Type: 
  Country: None (occurrence: None)
  Receive Date: 20100212
  Receipt Date: 20100204
  Transmission Date: 20100710
  Serious: Yes (Hospitalization, Other)
  Sender: FDA-Public Use
  Company Number: PHEH2005US11031

PATIENT
  Sex: Female
  Weight: 58.957 kg

DRUGS (9)
  1. ESTRADERM [Suspect]
     Indication: OSTEOPOROSIS PROPHYLAXIS
     Dosage: 0.05 MG, UNK
     Route: 062
     Dates: start: 19920101, end: 19981201
  2. PREMPRO [Suspect]
     Indication: OSTEOPOROSIS PROPHYLAXIS
     Dosage: .625/2.5 MG
     Route: 048
     Dates: start: 19981201, end: 20021001
  3. PROVERA [Suspect]
     Indication: OSTEOPOROSIS PROPHYLAXIS
     Dosage: 2.5 MG, UNK
     Route: 048
     Dates: start: 19920101, end: 19981201
  4. MEDROXYPROGESTERONE [Suspect]
     Indication: HORMONE REPLACEMENT THERAPY
     Dates: start: 19970101, end: 20020101
  5. FOSAMAX [Concomitant]
  6. CALCIUM [Concomitant]
  7. VITAMIN D [Concomitant]
  8. BONIVA [Concomitant]
  9. ZOCOR [Concomitant]

REACTIONS (56)
  - ABDOMINAL PAIN [None]
  - BACK PAIN [None]
  - BASAL CELL CARCINOMA [None]
  - BLOOD CHOLESTEROL INCREASED [None]
  - BONE DENSITOMETRY [None]
  - BREAST CANCER STAGE I [None]
  - BREAST CANCER STAGE II [None]
  - BREAST MASS [None]
  - BREAST NECROSIS [None]
  - CARDIAC FAILURE [None]
  - CHEMOTHERAPY [None]
  - CHRONIC OBSTRUCTIVE PULMONARY DISEASE [None]
  - DYSLIPIDAEMIA [None]
  - DYSPNOEA [None]
  - DYSPNOEA EXERTIONAL [None]
  - EMPHYSEMA [None]
  - ENDOSCOPY UPPER GASTROINTESTINAL TRACT [None]
  - EPIDURAL ANAESTHESIA [None]
  - FAT EMBOLISM [None]
  - GASTRITIS [None]
  - HEPATIC STEATOSIS [None]
  - HIP ARTHROPLASTY [None]
  - HYPERTENSION [None]
  - HYPOXIA [None]
  - INTERSTITIAL LUNG DISEASE [None]
  - LUMBAR SPINAL STENOSIS [None]
  - LYMPH NODE CANCER METASTATIC [None]
  - LYMPHADENECTOMY [None]
  - LYMPHOCYTE COUNT INCREASED [None]
  - MALIGNANT BREAST LUMP REMOVAL [None]
  - MALIGNANT MELANOMA [None]
  - MASTECTOMY [None]
  - MYOCARDIAL INFARCTION [None]
  - MYOCARDIAL ISCHAEMIA [None]
  - NAUSEA [None]
  - NUCLEAR MAGNETIC RESONANCE IMAGING ABNORMAL [None]
  - OESTROGEN RECEPTOR ASSAY POSITIVE [None]
  - OSTEOARTHRITIS [None]
  - OSTEOPENIA [None]
  - OSTEOPOROSIS [None]
  - PAIN IN EXTREMITY [None]
  - PERIPHERAL VASCULAR DISORDER [None]
  - PLEURAL FIBROSIS [None]
  - PROGESTERONE RECEPTOR ASSAY POSITIVE [None]
  - PULMONARY FIBROSIS [None]
  - PULMONARY HYPERTENSION [None]
  - RADIOTHERAPY [None]
  - RENAL CYST [None]
  - SCOLIOSIS [None]
  - SKIN LESION EXCISION [None]
  - SKIN NEOPLASM EXCISION [None]
  - SPINAL DECOMPRESSION [None]
  - SPINAL OSTEOARTHRITIS [None]
  - SPONDYLOLISTHESIS [None]
  - SQUAMOUS CELL CARCINOMA [None]
  - ULTRASOUND ABDOMEN ABNORMAL [None]
